FAERS Safety Report 9443135 (Version 2)
Quarter: 2013Q4

REPORT INFORMATION
  Report Type: Spontaneous
  Country: US (occurrence: US)
  Receive Date: 20130806
  Receipt Date: 20131211
  Transmission Date: 20140711
  Serious: Yes (Other)
  Sender: FDA-Public Use
  Company Number: US-BAYER-2013-094542

PATIENT
  Age: 21 Year
  Sex: Female
  Weight: 97.51 kg

DRUGS (3)
  1. MIRENA [Suspect]
     Dosage: 20 MCG/24HR, CONT
     Route: 015
     Dates: start: 201006, end: 20100713
  2. FLAGYL [Concomitant]
     Dosage: 500 U, BID
  3. CELEXA [Concomitant]
     Indication: DEPRESSION
     Dosage: UNK
     Dates: start: 2010, end: 2012

REACTIONS (9)
  - Embedded device [None]
  - Genital haemorrhage [None]
  - Abdominal pain upper [None]
  - Abdominal pain lower [None]
  - Injury [None]
  - Pain [None]
  - Anxiety [None]
  - Emotional distress [None]
  - Procedural pain [None]
